FAERS Safety Report 10047350 (Version 1)
Quarter: 2014Q1

REPORT INFORMATION
  Report Type: Spontaneous
  Country: US (occurrence: None)
  Receive Date: 20140328
  Receipt Date: 20140328
  Transmission Date: 20141002
  Serious: Yes (Other)
  Sender: FDA-Public Use
  Company Number: None

PATIENT
  Age: 17 Year
  Sex: Male
  Weight: 109 kg

DRUGS (11)
  1. LEVOFLOXACIN [Suspect]
  2. ATIVAN [Concomitant]
  3. BENADRYL [Concomitant]
  4. METHOTREXATE [Concomitant]
  5. TACROLIMUS [Concomitant]
  6. ALEMTUZUMAB [Concomitant]
  7. CLONAZEPAM [Concomitant]
  8. CYCLOPHOSPHAMIDE [Concomitant]
  9. FLUDARABINE [Concomitant]
  10. VORICONAZOLE [Concomitant]
  11. ZYPREXA [Concomitant]

REACTIONS (7)
  - Psychotic disorder [None]
  - Aggression [None]
  - Anxiety [None]
  - Agitation [None]
  - Suicidal ideation [None]
  - Self-injurious ideation [None]
  - Dissociative identity disorder [None]
